FAERS Safety Report 4681214-2 (Version None)
Quarter: 2005Q2

REPORT INFORMATION
  Report Type: 
  Country: None (occurrence: None)
  Receive Date: 20050601
  Receipt Date: 20050516
  Transmission Date: 20051028
  Serious: Yes (Other)
  Sender: FDA-Public Use
  Company Number: 214678

PATIENT
  Sex: Female

DRUGS (1)
  1. XOLAIR [Suspect]
     Dates: end: 20041001

REACTIONS (2)
  - MYOSITIS [None]
  - SCLERODERMA [None]
